FAERS Safety Report 8809402 (Version 2)
Quarter: 2012Q4

REPORT INFORMATION
  Report Type: 
  Country: MX (occurrence: MX)
  Receive Date: 20120926
  Receipt Date: 20121129
  Transmission Date: 20130627
  Serious: Yes (Hospitalization, Other)
  Sender: FDA-Public Use
  Company Number: PHHY2012MX083622

PATIENT
  Age: 68 None
  Sex: Female

DRUGS (4)
  1. CO-DIOVAN [Suspect]
     Indication: HYPERTENSION
     Dosage: 1 DF(160/12.5 mg), daily
     Route: 048
     Dates: start: 2002, end: 201210
  2. LOGIMAX [Concomitant]
     Indication: HYPERTENSION
     Dosage: 1.5 DF
  3. TENORMIN [Concomitant]
     Indication: HYPERTENSION
     Dosage: 1 DF, daily
     Dates: start: 2002
  4. CINARIZINE [Concomitant]
     Indication: HYPERTENSION
     Dosage: 1 DF, daily
     Dates: start: 2002

REACTIONS (13)
  - Cerebral infarction [Recovered/Resolved with Sequelae]
  - Mineral deficiency [Recovered/Resolved]
  - Cerebrovascular accident [Unknown]
  - Syncope [Unknown]
  - Confusional state [Recovered/Resolved]
  - Incoherent [Recovered/Resolved]
  - Speech disorder [Unknown]
  - Headache [Unknown]
  - Convulsion [Recovered/Resolved]
  - Sleep disorder [Recovered/Resolved]
  - Pollakiuria [Recovered/Resolved]
  - Dehydration [Recovered/Resolved]
  - Blood potassium decreased [Recovered/Resolved]
